FAERS Safety Report 6903861-7 (Version None)
Quarter: 2010Q3

REPORT INFORMATION
  Report Type: 
  Country: None (occurrence: None)
  Receive Date: 20100804
  Receipt Date: 20090110
  Transmission Date: 20110219
  Serious: No
  Sender: FDA-Public Use
  Company Number: US-PFIZER INC-2009153951

PATIENT
  Sex: Female
  Weight: 59 kg

DRUGS (4)
  1. LYRICA [Suspect]
     Indication: BURNING SENSATION
     Dosage: UNK
     Route: 048
     Dates: start: 20081001
  2. ATENOLOL [Concomitant]
     Indication: HYPERTENSION
     Dosage: UNK
  3. AMBIEN [Concomitant]
     Indication: SLEEP DISORDER
     Dosage: UNK
  4. ALVIL [Concomitant]
     Dosage: UNK

REACTIONS (4)
  - BURNING SENSATION [None]
  - GLOSSODYNIA [None]
  - ORAL DISCOMFORT [None]
  - THROAT IRRITATION [None]
